FAERS Safety Report 5003645-3 (Version None)
Quarter: 2006Q2

REPORT INFORMATION
  Report Type: 
  Country: None (occurrence: None)
  Receive Date: 20060516
  Receipt Date: 20050706
  Transmission Date: 20061013
  Serious: Yes (Hospitalization)
  Sender: FDA-Public Use
  Company Number: US-MERCK-0507USA00768

PATIENT
  Sex: Female

DRUGS (3)
  1. VIOXX [Suspect]
     Indication: ARTHRITIS
     Route: 048
  2. DOXEPIN HYDROCHLORIDE [Concomitant]
     Route: 065
  3. LEVOXYL [Concomitant]
     Route: 065

REACTIONS (4)
  - CHEST PAIN [None]
  - CHRONIC OBSTRUCTIVE PULMONARY DISEASE [None]
  - HEART RATE IRREGULAR [None]
  - INJURY [None]
